FAERS Safety Report 4847481-7 (Version None)
Quarter: 2005Q4

REPORT INFORMATION
  Report Type: 
  Country: None (occurrence: None)
  Receive Date: 20051205
  Receipt Date: 20050414
  Transmission Date: 20060501
  Serious: Yes (Life-Threatening, Hospitalization)
  Sender: FDA-Public Use
  Company Number: 26321

PATIENT
  Age: 78 Year
  Sex: Female

DRUGS (6)
  1. FLECAINIDE ACETATE [Suspect]
     Dosage: 100 MG
     Route: 048
     Dates: start: 20030715, end: 20050127
  2. PRETERAX (PERINDOPRIL, INDAPAMIDE) [Suspect]
     Dosage: 1 DOSAGE FORMS (1 IN 1 DAY(S))
     Route: 048
     Dates: start: 20020116, end: 20050127
  3. NAPROXEN SODIUM [Concomitant]
  4. M=HEMIGOXINE NATIVELLE (DIGOXIN) [Concomitant]
  5. ALLOPURINOL [Concomitant]
  6. NOOTROPYL (PIRACETAM) [Concomitant]

REACTIONS (8)
  - CARDIAC ARREST [None]
  - CREATININE RENAL CLEARANCE DECREASED [None]
  - ELECTROCARDIOGRAM QT PROLONGED [None]
  - LOSS OF CONSCIOUSNESS [None]
  - SINUS BRADYCARDIA [None]
  - SUPRAVENTRICULAR EXTRASYSTOLES [None]
  - TORSADE DE POINTES [None]
  - VENTRICULAR HYPERTROPHY [None]
